FAERS Safety Report 18761620 (Version 1)
Quarter: 2021Q1

REPORT INFORMATION
  Report Type: Spontaneous
  Country: US (occurrence: US)
  Receive Date: 20210118
  Receipt Date: 20210118
  Transmission Date: 20210419
  Serious: Yes (Hospitalization)
  Sender: FDA-Public Use
  Company Number: None

PATIENT
  Age: 66 Year
  Sex: Female

DRUGS (14)
  1. ETHACRYNIC ACID. [Concomitant]
     Active Substance: ETHACRYNIC ACID
  2. SILDENAFIL. [Concomitant]
     Active Substance: SILDENAFIL
  3. TRAMADOL. [Concomitant]
     Active Substance: TRAMADOL
  4. OMEGA?3 FISH OIL [Concomitant]
     Active Substance: FISH OIL\OMEGA-3 FATTY ACIDS
  5. OXYGEN SUPPLEMENT [Concomitant]
  6. NORTRIPTYLINE [Concomitant]
     Active Substance: NORTRIPTYLINE
  7. AMBRISENTAN 10MG 30/BO: 10MG [Suspect]
     Active Substance: AMBRISENTAN
     Indication: PULMONARY HYPERTENSION
     Route: 048
     Dates: start: 20120816, end: 202012
  8. KLOR?CON [Concomitant]
     Active Substance: POTASSIUM CHLORIDE
  9. TORSEMIDE. [Concomitant]
     Active Substance: TORSEMIDE
  10. ATENOLOL. [Concomitant]
     Active Substance: ATENOLOL
  11. DIGOXIN. [Concomitant]
     Active Substance: DIGOXIN
  12. VELETRI [Concomitant]
     Active Substance: EPOPROSTENOL
  13. AZATHIOPRINE. [Concomitant]
     Active Substance: AZATHIOPRINE
  14. FLONASE [Concomitant]
     Active Substance: FLUTICASONE PROPIONATE

REACTIONS (4)
  - Weight increased [None]
  - Acute kidney injury [None]
  - Cardiac failure [None]
  - Oedema peripheral [None]

NARRATIVE: CASE EVENT DATE: 20201215
